FAERS Safety Report 12771500 (Version 1)
Quarter: 2016Q3

REPORT INFORMATION
  Report Type: Spontaneous
  Country: US (occurrence: US)
  Receive Date: 20160922
  Receipt Date: 20160922
  Transmission Date: 20161109
  Serious: No
  Sender: FDA-Public Use
  Company Number: US-AMGEN-USASP2016049012

PATIENT
  Age: 77 Year
  Sex: Female
  Weight: 56.7 kg

DRUGS (6)
  1. NEUPOGEN [Suspect]
     Active Substance: FILGRASTIM
     Indication: WHITE BLOOD CELL COUNT DECREASED
     Dosage: UNK
     Route: 065
  2. PROLIA [Concomitant]
     Active Substance: DENOSUMAB
     Indication: BONE DENSITY DECREASED
     Dosage: UNK, TWICE A YEAR
  3. ROBITUSSIN CF                      /00497901/ [Suspect]
     Active Substance: DEXTROMETHORPHAN\GUAIFENESIN\PHENYLPROPANOLAMINE HYDROCHLORIDE
     Indication: COUGH
  4. METFORMIN [Concomitant]
     Active Substance: METFORMIN HYDROCHLORIDE
     Indication: DIABETES MELLITUS
     Dosage: 500 MG, TWICE A DAY
  5. ROBITUSSIN CF                      /00497901/ [Suspect]
     Active Substance: DEXTROMETHORPHAN\GUAIFENESIN\PHENYLPROPANOLAMINE HYDROCHLORIDE
     Indication: NASAL CONGESTION
     Dosage: 20 ML LIQUID SUSPENSION, ONCE
     Route: 048
     Dates: start: 20160409, end: 20160409
  6. LOTREL                             /07929501/ [Concomitant]
     Indication: HYPERTENSION
     Dosage: 5/20 MG, ONCE A DAY
     Route: 048

REACTIONS (1)
  - Blood glucose increased [Recovered/Resolved]

NARRATIVE: CASE EVENT DATE: 20160409
